FAERS Safety Report 5631176-6 (Version None)
Quarter: 2008Q1

REPORT INFORMATION
  Report Type: 
  Country: None (occurrence: None)
  Receive Date: 20080219
  Receipt Date: 20080207
  Transmission Date: 20080703
  Serious: Yes (Other)
  Sender: FDA-Public Use
  Company Number: US-PFIZER INC-2008013308

PATIENT

DRUGS (1)
  1. CHANTIX [Suspect]

REACTIONS (6)
  - ADVERSE DRUG REACTION [None]
  - DRUG INEFFECTIVE [None]
  - ILL-DEFINED DISORDER [None]
  - OBSESSIVE-COMPULSIVE PERSONALITY DISORDER [None]
  - POOR QUALITY SLEEP [None]
  - STRESS [None]
